FAERS Safety Report 12933828 (Version 1)
Quarter: 2016Q4

REPORT INFORMATION
  Report Type: Spontaneous
  Country: AU (occurrence: AU)
  Receive Date: 20161111
  Receipt Date: 20161111
  Transmission Date: 20170207
  Serious: Yes (Other)
  Sender: FDA-Public Use
  Company Number: AU-SA-2016SA202164

PATIENT
  Age: 11 Year
  Sex: Female

DRUGS (9)
  1. SINGULAIR [Concomitant]
     Active Substance: MONTELUKAST SODIUM
     Route: 065
  2. FEXOFENADINE [Suspect]
     Active Substance: FEXOFENADINE\FEXOFENADINE HYDROCHLORIDE
     Indication: SNEEZING
     Dosage: FREQUENCY: 1 TABLET TWICE DAILY AFTERNOON
     Route: 048
     Dates: start: 20161101
  3. FEXOFENADINE [Suspect]
     Active Substance: FEXOFENADINE\FEXOFENADINE HYDROCHLORIDE
     Indication: RHINORRHOEA
     Dosage: AT 9 AM IN THE MORNING
     Route: 048
     Dates: start: 20161104
  4. FEXOFENADINE [Suspect]
     Active Substance: FEXOFENADINE\FEXOFENADINE HYDROCHLORIDE
     Indication: SNEEZING
     Dosage: AT 9 AM IN THE MORNING
     Route: 048
     Dates: start: 20161104
  5. RHINOCORT [Concomitant]
     Active Substance: BUDESONIDE
     Dosage: DOSAGE FORM: NASAL SPRAY
     Route: 045
     Dates: end: 20161103
  6. FEXOFENADINE [Suspect]
     Active Substance: FEXOFENADINE\FEXOFENADINE HYDROCHLORIDE
     Indication: RHINORRHOEA
     Dosage: FREQUENCY: 1 TABLET TWICE DAILY AFTERNOON
     Route: 048
     Dates: start: 20161101
  7. SYMBICORT [Concomitant]
     Active Substance: BUDESONIDE\FORMOTEROL FUMARATE DIHYDRATE
     Dosage: RAPIHALER 50/3 AT A DOSE OF 2 PUFFS TWICE DAILY DOSE:2 PUFF(S)
     Route: 065
  8. FEXOFENADINE [Suspect]
     Active Substance: FEXOFENADINE\FEXOFENADINE HYDROCHLORIDE
     Indication: ASTHMA
     Dosage: FREQUENCY: 1 TABLET TWICE DAILY AFTERNOON
     Route: 048
     Dates: start: 20161101
  9. FEXOFENADINE [Suspect]
     Active Substance: FEXOFENADINE\FEXOFENADINE HYDROCHLORIDE
     Indication: ASTHMA
     Dosage: AT 9 AM IN THE MORNING
     Route: 048
     Dates: start: 20161104

REACTIONS (3)
  - Anxiety [Unknown]
  - Suicidal ideation [Unknown]
  - Homicidal ideation [Unknown]

NARRATIVE: CASE EVENT DATE: 20161104
